FAERS Safety Report 8614286 (Version 4)
Quarter: 2014Q2

REPORT INFORMATION
  Report Type: Spontaneous
  Country: US (occurrence: US)
  Receive Date: 20120614
  Receipt Date: 20140523
  Transmission Date: 20141212
  Serious: Yes (Other)
  Sender: FDA-Public Use
  Company Number: US-ASTRAZENECA-2012SE35188

PATIENT
  Age: 55 Year
  Sex: Female

DRUGS (15)
  1. NEXIUM [Suspect]
     Indication: DYSPEPSIA
     Route: 048
     Dates: start: 2007, end: 2011
  2. NEXIUM [Suspect]
     Indication: DYSPEPSIA
     Route: 048
     Dates: start: 2007, end: 2011
  3. NEXIUM [Suspect]
     Indication: GASTRIC DISORDER
     Route: 048
     Dates: start: 2007, end: 2011
  4. NEXIUM [Suspect]
     Indication: DYSPEPSIA
     Route: 048
     Dates: start: 20061228
  5. NEXIUM [Suspect]
     Indication: DYSPEPSIA
     Route: 048
     Dates: start: 20061228
  6. NEXIUM [Suspect]
     Indication: GASTRIC DISORDER
     Route: 048
     Dates: start: 20061228
  7. TYLENOL [Concomitant]
  8. ADVIL [Concomitant]
  9. VITAMIN [Concomitant]
  10. HERB [Concomitant]
  11. TAMIFLU [Concomitant]
     Route: 048
     Dates: start: 20030831
  12. HYDROCODONE/APAP [Concomitant]
     Dosage: 5 MG/ 500 MG EVERY FOUR TO SIX HR
     Route: 048
     Dates: start: 20050210
  13. PHENAZOPYRIDINE [Concomitant]
     Route: 048
     Dates: start: 20050213
  14. RANITIDINE [Concomitant]
     Route: 048
     Dates: start: 20061228
  15. XIFAXAN [Concomitant]
     Route: 048
     Dates: start: 20061228

REACTIONS (11)
  - Hip fracture [Unknown]
  - Osteoporosis [Unknown]
  - Wrist fracture [Unknown]
  - Upper limb fracture [Unknown]
  - Osteopenia [Unknown]
  - Neck pain [Unknown]
  - Arthritis [Unknown]
  - Bone disorder [Unknown]
  - Rheumatoid arthritis [Unknown]
  - Intervertebral disc protrusion [Unknown]
  - Spinal column stenosis [Unknown]
